FAERS Safety Report 7115774-9 (Version None)
Quarter: 2010Q4

REPORT INFORMATION
  Report Type: 
  Country: None (occurrence: None)
  Receive Date: 20101122
  Receipt Date: 20101117
  Transmission Date: 20110411
  Serious: Yes (Other)
  Sender: FDA-Public Use
  Company Number: US-JNJFOC-20101102910

PATIENT

DRUGS (1)
  1. TOPAMAX [Suspect]
     Indication: ILL-DEFINED DISORDER
     Route: 065

REACTIONS (2)
  - HYPOHIDROSIS [None]
  - TEMPERATURE INTOLERANCE [None]
